FAERS Safety Report 16910865 (Version 1)
Quarter: 2019Q4

REPORT INFORMATION
  Report Type: Spontaneous
  Country: US (occurrence: US)
  Receive Date: 20191012
  Receipt Date: 20191012
  Transmission Date: 20200122
  Serious: No
  Sender: FDA-Public Use
  Company Number: US-BION-007827

PATIENT

DRUGS (2)
  1. ESTRADIOL. [Concomitant]
     Active Substance: ESTRADIOL
     Dosage: STRENGTH: 0.5 MG
  2. PROGESTERONE 200 MG CAPSULE BIONPHARMA [Suspect]
     Active Substance: PROGESTERONE
     Indication: PRODUCT USED FOR UNKNOWN INDICATION
     Dosage: STRENGTH: 200 MG
     Route: 048
     Dates: start: 201807

REACTIONS (3)
  - Nausea [Unknown]
  - Vertigo [Unknown]
  - Dizziness [Unknown]
